FAERS Safety Report 19936119 (Version 1)
Quarter: 2021Q4

REPORT INFORMATION
  Report Type: Spontaneous
  Country: DE (occurrence: DE)
  Receive Date: 20211009
  Receipt Date: 20211009
  Transmission Date: 20220303
  Serious: Yes (Other)
  Sender: FDA-Public Use
  Company Number: None

PATIENT
  Age: 36 Year
  Sex: Female

DRUGS (1)
  1. OCRELIZUMAB [Suspect]
     Active Substance: OCRELIZUMAB
     Indication: Primary progressive multiple sclerosis
     Dosage: 600 MG EVERY 6 MONTHS; SINCE 7/2018; CURRENTLY A TOTAL OF 6 CYCLES OF 600 MG EACH
     Route: 042
     Dates: start: 20180705

REACTIONS (1)
  - Breast cancer [Not Recovered/Not Resolved]
